FAERS Safety Report 10225039 (Version 3)
Quarter: 2014Q3

REPORT INFORMATION
  Report Type: Spontaneous
  Country: US (occurrence: US)
  Receive Date: 20140609
  Receipt Date: 20140715
  Transmission Date: 20150326
  Serious: Yes (Other)
  Sender: FDA-Public Use
  Company Number: PHEH2014US011376

PATIENT
  Sex: Male

DRUGS (1)
  1. EXELON PATCH [Suspect]
     Active Substance: RIVASTIGMINE
     Dosage: 13.3 MG, DAILY
     Route: 062

REACTIONS (3)
  - Dementia [Unknown]
  - Wrong technique in drug usage process [Unknown]
  - Skin discolouration [Recovered/Resolved]
